FAERS Safety Report 14821780 (Version 1)
Quarter: 2018Q2

REPORT INFORMATION
  Report Type: Spontaneous
  Country: DE (occurrence: DE)
  Receive Date: 20180427
  Receipt Date: 20180427
  Transmission Date: 20180711
  Serious: Yes (Death)
  Sender: FDA-Public Use
  Company Number: DE-VALIDUS PHARMACEUTICALS LLC-DE-2018VAL000703

PATIENT
  Age: 73 Year
  Sex: Female

DRUGS (34)
  1. PLAVIX [Suspect]
     Active Substance: CLOPIDOGREL BISULFATE
     Indication: CORONARY ARTERY DISEASE
     Dosage: UNK
     Route: 048
     Dates: start: 20010704, end: 20010714
  2. ISOSORBIDE MONONITRATE. [Suspect]
     Active Substance: ISOSORBIDE MONONITRATE
     Indication: CORONARY ARTERY DISEASE
     Dosage: UNK
     Route: 048
     Dates: start: 20010703, end: 20010714
  3. CIPROFLOXACIN HYDROCHLORIDE. [Suspect]
     Active Substance: CIPROFLOXACIN HYDROCHLORIDE
     Indication: CHOLECYSTITIS
     Dosage: 500 MG, QD
     Route: 048
     Dates: start: 20010620, end: 20010628
  4. RAMIPRIL. [Concomitant]
     Active Substance: RAMIPRIL
     Indication: PRODUCT USED FOR UNKNOWN INDICATION
     Dosage: UNK
     Dates: end: 20010714
  5. BISOPROLOL FUMARATE. [Concomitant]
     Active Substance: BISOPROLOL FUMARATE
     Indication: PRODUCT USED FOR UNKNOWN INDICATION
     Dosage: UNK
     Dates: end: 20010714
  6. GLIMEPIRIDE. [Concomitant]
     Active Substance: GLIMEPIRIDE
     Indication: PRODUCT USED FOR UNKNOWN INDICATION
     Dosage: UNK
     Dates: end: 20010703
  7. ATORVASTATIN CALCIUM. [Concomitant]
     Active Substance: ATORVASTATIN CALCIUM
     Indication: PRODUCT USED FOR UNKNOWN INDICATION
     Dosage: UNK
     Dates: end: 20010703
  8. TRANXENE [Suspect]
     Active Substance: CLORAZEPATE DIPOTASSIUM
     Indication: RESTLESSNESS
     Dosage: 10 MG, QD
     Route: 048
     Dates: start: 20010710, end: 20010714
  9. DALTEPARIN SODIUM [Suspect]
     Active Substance: DALTEPARIN SODIUM
     Indication: THROMBOSIS PROPHYLAXIS
     Dosage: 2500 IU, QD
     Route: 058
     Dates: start: 20010703, end: 20010714
  10. PARACETAMOL [Suspect]
     Active Substance: ACETAMINOPHEN
     Indication: PAIN
     Dosage: 500 MG, QD
     Route: 048
     Dates: start: 20010711, end: 20010711
  11. PERENTEROL [Suspect]
     Active Substance: SACCHAROMYCES CEREVISIAE
     Indication: DIARRHOEA
     Dosage: UNK
     Route: 048
     Dates: start: 20010711
  12. DIGOXIN. [Suspect]
     Active Substance: DIGOXIN
     Indication: CORONARY ARTERY DISEASE
     Dosage: 0.2 MG, QD
     Route: 048
     Dates: start: 20010703, end: 20010714
  13. CARBIMAZOLE [Concomitant]
     Active Substance: CARBIMAZOLE
     Indication: PRODUCT USED FOR UNKNOWN INDICATION
     Dosage: UNK
     Dates: start: 20010621, end: 20010714
  14. PANTOPRAZOLE SODIUM. [Concomitant]
     Active Substance: PANTOPRAZOLE SODIUM
     Indication: PRODUCT USED FOR UNKNOWN INDICATION
     Dosage: UNK
     Dates: end: 20010614
  15. POTASSIUM CHLORIDE. [Concomitant]
     Active Substance: POTASSIUM CHLORIDE
     Indication: PRODUCT USED FOR UNKNOWN INDICATION
     Dosage: UNK
     Dates: start: 20010703, end: 20010714
  16. PREDNISOLONE SODIUM SUCCINATE [Suspect]
     Active Substance: PREDNISOLONE SODIUM SUCCINATE
     Indication: DYSPNOEA
     Dosage: 50 MG, QD
     Route: 042
     Dates: start: 20010703, end: 20010703
  17. METOCLOPRAMIDE                     /00041902/ [Suspect]
     Active Substance: METOCLOPRAMIDE HYDROCHLORIDE
     Indication: NAUSEA
     Dosage: 75 GTT, QD
     Route: 048
     Dates: start: 20010704, end: 20010712
  18. ASPIRIN                            /00002701/ [Suspect]
     Active Substance: ASPIRIN
     Indication: CORONARY ARTERY DISEASE
     Dosage: 100 MG, QD
     Route: 048
     Dates: end: 20010714
  19. DIAZEPAM. [Suspect]
     Active Substance: DIAZEPAM
     Indication: RESTLESSNESS
     Dosage: 15 MG, QD
     Route: 048
     Dates: end: 20010703
  20. INSULIN GLARGINE [Concomitant]
     Active Substance: INSULIN GLARGINE
     Indication: PRODUCT USED FOR UNKNOWN INDICATION
     Dosage: UNK
     Dates: end: 20010629
  21. SODIUM PERCHLORATE [Concomitant]
     Indication: PRODUCT USED FOR UNKNOWN INDICATION
     Dosage: UNK
     Dates: start: 20010618, end: 20010714
  22. MOLSIDOMINE [Suspect]
     Active Substance: MOLSIDOMINE
     Indication: CORONARY ARTERY DISEASE
     Dosage: UNK
     Route: 048
     Dates: start: 20010703, end: 20010714
  23. METOLAZONE. [Suspect]
     Active Substance: METOLAZONE
     Indication: HYPERTENSION
     Dosage: UNK
     Route: 048
     Dates: start: 20010712, end: 20010713
  24. CAPTOPRIL. [Concomitant]
     Active Substance: CAPTOPRIL
     Indication: PRODUCT USED FOR UNKNOWN INDICATION
     Dosage: UNK
     Dates: end: 20010714
  25. DECORTIN [Suspect]
     Active Substance: PREDNISONE
     Indication: DYSPNOEA
     Dosage: 50 MG, QD
     Route: 042
     Dates: start: 20010703, end: 20010703
  26. NOVODIGAL /00017701/ [Suspect]
     Active Substance: DIGOXIN
     Indication: CORONARY ARTERY DISEASE
     Dosage: UNK
     Route: 048
     Dates: start: 20010703
  27. AMPHOTERICIN B. [Suspect]
     Active Substance: AMPHOTERICIN B
     Indication: PROPHYLAXIS
     Dosage: 8 DF, QD
     Route: 048
     Dates: start: 20010703, end: 20010714
  28. BROMAZEPAM [Concomitant]
     Active Substance: BROMAZEPAM
     Indication: PRODUCT USED FOR UNKNOWN INDICATION
     Dosage: UNK
     Dates: start: 20010713, end: 20010714
  29. CEFTRIAXONE SODIUM. [Suspect]
     Active Substance: CEFTRIAXONE SODIUM
     Indication: PYREXIA
     Dosage: 2 G, QD
     Route: 042
     Dates: start: 20010629, end: 20010703
  30. FUROSEMIDE. [Suspect]
     Active Substance: FUROSEMIDE
     Indication: HYPERTENSION
     Dosage: 80 MG, QD
     Route: 042
     Dates: start: 20010703, end: 20010714
  31. AMLODIPINE [Suspect]
     Active Substance: AMLODIPINE BESYLATE
     Indication: CORONARY ARTERY DISEASE
     Dosage: 10 MG, QD
     Route: 048
     Dates: start: 20010703, end: 20010714
  32. MELPERONE HYDROCHLORIDE [Suspect]
     Active Substance: MELPERONE HYDROCHLORIDE
     Indication: RESTLESSNESS
     Dosage: 16 ML, QD
     Route: 048
     Dates: start: 20010706, end: 20010712
  33. METFORMIN HYDROCHLORIDE. [Concomitant]
     Active Substance: METFORMIN HYDROCHLORIDE
     Indication: PRODUCT USED FOR UNKNOWN INDICATION
     Dosage: UNK
     Dates: end: 20010714
  34. HALDOL [Suspect]
     Active Substance: HALOPERIDOL
     Indication: PRODUCT USED FOR UNKNOWN INDICATION
     Dosage: 3 GTT, QD
     Route: 048
     Dates: start: 20010713, end: 20010714

REACTIONS (3)
  - Multiple organ dysfunction syndrome [Fatal]
  - Toxic epidermal necrolysis [Fatal]
  - Respiratory disorder [Fatal]

NARRATIVE: CASE EVENT DATE: 200107
